FAERS Safety Report 15768668 (Version 2)
Quarter: 2019Q1

REPORT INFORMATION
  Report Type: Spontaneous
  Country: US (occurrence: US)
  Receive Date: 20181228
  Receipt Date: 20190123
  Transmission Date: 20190417
  Serious: No
  Sender: FDA-Public Use
  Company Number: US-ASTRAZENECA-2018SF67734

PATIENT
  Sex: Female
  Weight: 52.6 kg

DRUGS (13)
  1. VITAMIN B12 [Concomitant]
     Active Substance: CYANOCOBALAMIN
     Indication: VITAMIN B12 DECREASED
     Route: 048
  2. TUDORZA PRESSAIR [Suspect]
     Active Substance: ACLIDINIUM BROMIDE
     Indication: CARDIAC DISORDER
     Route: 055
     Dates: start: 201810
  3. IRON [Concomitant]
     Active Substance: IRON
     Indication: BLOOD IRON DECREASED
     Route: 048
  4. VITAMIN C [Concomitant]
     Active Substance: ASCORBIC ACID
     Indication: VITAMIN C ABNORMAL
     Dosage: 4 VITAMIN C 500 MG TABS A DAY
     Route: 048
  5. METOPROLOL TARTRATE. [Suspect]
     Active Substance: METOPROLOL TARTRATE
     Indication: HYPERTENSION
     Route: 048
  6. FUROSEMIDE. [Concomitant]
     Active Substance: FUROSEMIDE
     Indication: POLYURIA
     Dosage: ONE TAB 4 DAYS A WEEK
     Route: 048
  7. NITROGLYCERIN. [Concomitant]
     Active Substance: NITROGLYCERIN
     Indication: CHEST PAIN
     Dosage: AS REQUIRED
     Route: 060
  8. PROAIR HFA [Concomitant]
     Active Substance: ALBUTEROL SULFATE
     Indication: PANIC DISORDER
     Dosage: 4 TIMES A DAY AS NEEDED AS REQUIRED
     Route: 055
  9. RALOXIFENE. [Concomitant]
     Active Substance: RALOXIFENE
     Route: 048
  10. ADVAIR HFA [Concomitant]
     Active Substance: FLUTICASONE PROPIONATE\SALMETEROL XINAFOATE
     Indication: DYSPNOEA
     Dosage: 25-50 STRENGTH, ONE PUFF TWICE DAILY
     Route: 055
  11. RANITIDINE. [Concomitant]
     Active Substance: RANITIDINE
     Indication: MEMORY IMPAIRMENT
     Route: 048
  12. COQ10 [Concomitant]
     Active Substance: UBIDECARENONE
     Indication: ILL-DEFINED DISORDER
     Route: 048
  13. CALCIUM [Concomitant]
     Active Substance: CALCIUM
     Indication: BLOOD CALCIUM ABNORMAL
     Route: 048

REACTIONS (7)
  - Macular degeneration [Unknown]
  - Dyspnoea [Unknown]
  - Device malfunction [Unknown]
  - Intentional device misuse [Unknown]
  - Off label use [Unknown]
  - Product dose omission [Unknown]
  - Device use issue [Unknown]
